FAERS Safety Report 23717312 (Version 2)
Quarter: 2024Q2

REPORT INFORMATION
  Report Type: Spontaneous
  Country: CA (occurrence: CA)
  Receive Date: 20240408
  Receipt Date: 20240521
  Transmission Date: 20240716
  Serious: Yes (Hospitalization, Other)
  Sender: FDA-Public Use
  Company Number: CA-SANDOZ-SDZ2024CA036707

PATIENT
  Sex: Male

DRUGS (10)
  1. OLANZAPINE [Suspect]
     Active Substance: OLANZAPINE
     Indication: Post-traumatic stress disorder
     Dosage: 2.5 MG, QD
     Route: 065
  2. RISPERIDONE [Suspect]
     Active Substance: RISPERIDONE
     Indication: Post-traumatic stress disorder
     Dosage: 0.25 MG, BID
     Route: 065
  3. CITALOPRAM [Concomitant]
     Active Substance: CITALOPRAM\CITALOPRAM HYDROBROMIDE
     Indication: Product used for unknown indication
     Dosage: 20 MG, QD
     Route: 065
  4. CLONAZEPAM [Concomitant]
     Active Substance: CLONAZEPAM
     Indication: Product used for unknown indication
     Dosage: 0.5 MG, QD
     Route: 065
  5. QUETIAPINE [Concomitant]
     Active Substance: QUETIAPINE
     Dosage: 100 MG, QD
     Route: 065
  6. QUETIAPINE [Concomitant]
     Active Substance: QUETIAPINE
     Indication: Product used for unknown indication
     Dosage: 12.5 MG, QD
     Route: 065
  7. QUETIAPINE [Concomitant]
     Active Substance: QUETIAPINE
     Dosage: 12.5 MG, Q8H
     Route: 065
  8. QUETIAPINE [Concomitant]
     Active Substance: QUETIAPINE
     Indication: Dementia with Lewy bodies
     Dosage: 25 MG, BID
     Route: 065
  9. QUETIAPINE [Concomitant]
     Active Substance: QUETIAPINE
     Indication: Post-traumatic stress disorder
     Dosage: UNK
     Route: 065
  10. RIVASTIGMINE [Concomitant]
     Active Substance: RIVASTIGMINE
     Indication: Dementia with Lewy bodies
     Dosage: 1.5 MG, BID
     Route: 065

REACTIONS (2)
  - Parkinsonism [Recovering/Resolving]
  - Off label use [Recovering/Resolving]
